FAERS Safety Report 17876596 (Version 24)
Quarter: 2025Q3

REPORT INFORMATION
  Report Type: Report from Study
  Country: US (occurrence: US)
  Receive Date: 20200609
  Receipt Date: 20250818
  Transmission Date: 20251021
  Serious: Yes (Hospitalization, Other)
  Sender: TAKEDA
  Company Number: US-SHIRE-US202019030

PATIENT
  Age: 57 Year
  Sex: Female
  Weight: 73 kg

DRUGS (26)
  1. HUMAN IMMUNOGLOBULIN G [Suspect]
     Active Substance: HUMAN IMMUNOGLOBULIN G
     Indication: Immune system disorder
     Dosage: 10 GRAM, 1/WEEK
  2. HUMAN IMMUNOGLOBULIN G [Suspect]
     Active Substance: HUMAN IMMUNOGLOBULIN G
     Indication: Hypergammaglobulinaemia
  3. REPATHA [Suspect]
     Active Substance: EVOLOCUMAB
     Indication: Product used for unknown indication
  4. DIPHENHYDRAMINE [Concomitant]
     Active Substance: DIPHENHYDRAMINE
  5. VITAMIN D [Concomitant]
     Active Substance: VITAMIN D NOS
  6. POTASSIUM CHLORIDE [Concomitant]
     Active Substance: POTASSIUM CHLORIDE
  7. CARVEDILOL [Concomitant]
     Active Substance: CARVEDILOL
  8. FUROSEMIDE [Concomitant]
     Active Substance: FUROSEMIDE
  9. EPINEPHRINE [Concomitant]
     Active Substance: EPINEPHRINE
  10. VORICONAZOLE [Concomitant]
     Active Substance: VORICONAZOLE
  11. ESTRADIOL [Concomitant]
     Active Substance: ESTRADIOL
  12. ACETAMINOPHEN [Concomitant]
     Active Substance: ACETAMINOPHEN
  13. AZELASTINE HYDROCHLORIDE [Concomitant]
     Active Substance: AZELASTINE HYDROCHLORIDE
  14. OLOPATADINE HYDROCHLORIDE [Concomitant]
     Active Substance: OLOPATADINE HYDROCHLORIDE
  15. CLOTRIMAZOLE [Concomitant]
     Active Substance: CLOTRIMAZOLE
  16. CRESTOR [Concomitant]
     Active Substance: ROSUVASTATIN CALCIUM
  17. PROTONIX [Concomitant]
     Active Substance: PANTOPRAZOLE SODIUM
  18. CUTAQUIG [Concomitant]
     Active Substance: HUMAN IMMUNOGLOBULIN G
  19. CARAFATE [Concomitant]
     Active Substance: SUCRALFATE
  20. LIDOCAINE [Concomitant]
     Active Substance: LIDOCAINE
  21. CLONAZEPAM [Concomitant]
     Active Substance: CLONAZEPAM
  22. CYMBALTA [Concomitant]
     Active Substance: DULOXETINE HYDROCHLORIDE
  23. AZELASTINE [Concomitant]
     Active Substance: AZELASTINE
  24. Lmx [Concomitant]
  25. ZETIA [Concomitant]
     Active Substance: EZETIMIBE
  26. DIPHENHYDRAMINE HYDROCHLORIDE [Concomitant]
     Active Substance: DIPHENHYDRAMINE HYDROCHLORIDE

REACTIONS (25)
  - Pneumonia [Unknown]
  - Pneumonia influenzal [Unknown]
  - Urinary tract infection [Unknown]
  - Sinusitis bacterial [Unknown]
  - Staphylococcal infection [Unknown]
  - Neoplasm [Unknown]
  - Drug hypersensitivity [Unknown]
  - Croup infectious [Unknown]
  - Acute respiratory distress syndrome [Unknown]
  - Coma [Unknown]
  - Illness [Unknown]
  - Candida infection [Not Recovered/Not Resolved]
  - Oral infection [Not Recovered/Not Resolved]
  - Localised infection [Not Recovered/Not Resolved]
  - Meniscus injury [Unknown]
  - Nasopharyngitis [Unknown]
  - Tooth infection [Unknown]
  - Administration site pain [Unknown]
  - Product dose omission issue [Unknown]
  - Infusion site discharge [Unknown]
  - COVID-19 [Unknown]
  - Sinusitis [Not Recovered/Not Resolved]
  - Oral candidiasis [Unknown]
  - Injection site pain [Unknown]
  - Vomiting [Unknown]

NARRATIVE: CASE EVENT DATE: 20211225
